FAERS Safety Report 24977232 (Version 1)
Quarter: 2025Q1

REPORT INFORMATION
  Report Type: Spontaneous
  Country: NL (occurrence: None)
  Receive Date: 20250217
  Receipt Date: 20250217
  Transmission Date: 20250409
  Serious: Yes (Other)
  Sender: ALEXION PHARMACEUTICALS
  Company Number: NL-AstraZeneca-2008AC01728

PATIENT

DRUGS (4)
  1. NEXIUM [Suspect]
     Active Substance: ESOMEPRAZOLE MAGNESIUM
     Dosage: 20 MILLIGRAM, QD
  2. MAGNESIUM [Concomitant]
     Active Substance: MAGNESIUM
  3. DRY EYE GEL [Concomitant]
  4. TRIMETHOPRIM [Concomitant]
     Active Substance: TRIMETHOPRIM

REACTIONS (7)
  - Muscle spasms [Unknown]
  - Hypoaesthesia [Unknown]
  - Feeling abnormal [Unknown]
  - Facial paralysis [Recovered/Resolved]
  - Paraesthesia [Unknown]
  - Paraesthesia [Unknown]
  - Rash [Unknown]
